FAERS Safety Report 21093096 (Version 3)
Quarter: 2023Q1

REPORT INFORMATION
  Report Type: Spontaneous
  Country: US (occurrence: US)
  Receive Date: 20220718
  Receipt Date: 20230105
  Transmission Date: 20230417
  Serious: Yes (Other)
  Sender: FDA-Public Use
  Company Number: US-SA-SAC20220714000676

PATIENT
  Age: 47 Year
  Sex: Male
  Weight: 82 kg

DRUGS (5)
  1. AUBAGIO [Suspect]
     Active Substance: TERIFLUNOMIDE
     Indication: Multiple sclerosis
     Dosage: 14 MG, QD
     Route: 048
     Dates: start: 20210604
  2. AMPYRA [Concomitant]
     Active Substance: DALFAMPRIDINE
     Indication: Multiple sclerosis
     Dosage: 10MG BID
  3. GABAPENTIN [Concomitant]
     Active Substance: GABAPENTIN
     Dosage: 400MG TID
  4. TIZANIDINE [Concomitant]
     Active Substance: TIZANIDINE
     Dosage: 4-4-8G
  5. VIAGRA [Concomitant]
     Active Substance: SILDENAFIL CITRATE
     Dosage: 50N MG

REACTIONS (3)
  - Thrombocytopenia [Recovered/Resolved]
  - Peroneal nerve palsy [Unknown]
  - Drug ineffective [Unknown]

NARRATIVE: CASE EVENT DATE: 20220406
